FAERS Safety Report 8073141-8 (Version None)
Quarter: 2012Q1

REPORT INFORMATION
  Report Type: 
  Country: None (occurrence: None)
  Receive Date: 20120120
  Receipt Date: 20120113
  Transmission Date: 20120608
  Serious: Yes (Life-Threatening, Hospitalization, Other)
  Sender: FDA-Public Use
  Company Number: 1146929

PATIENT
  Age: 42 Year
  Sex: Male
  Weight: 104 kg

DRUGS (9)
  1. PIRENZEPINE [Concomitant]
  2. CYCLOPHOSPHAMIDE [Suspect]
     Indication: DIFFUSE LARGE B-CELL LYMPHOMA
     Dosage: 1600 MG MILLIGRAM(S), INTRAVENOUS
     Route: 042
     Dates: start: 20111122
  3. CITALOPRAM HYDROBROMIDE [Concomitant]
  4. NEUPOGEN [Suspect]
     Indication: DIFFUSE LARGE B-CELL LYMPHOMA
     Dosage: 800 MG MILLIGRAM(S)
     Dates: start: 20111123
  5. DOXORUBICIN HCL [Suspect]
     Indication: DIFFUSE LARGE B-CELL LYMPHOMA
     Dosage: 2 MG MILLIGRAM(S), UNKNOWN INTRAVENOUS
     Route: 042
     Dates: start: 20111122
  6. CLOZAPINE [Suspect]
     Indication: SCHIZOPHRENIA
     Dosage: 200 MG MILLIGRAM(S), 1 DAY, ORAL
     Route: 048
     Dates: start: 20100915, end: 20111201
  7. AMISULPRIDE [Concomitant]
  8. VINCRISTINE SULFATE [Suspect]
     Indication: DIFFUSE LARGE B-CELL LYMPHOMA
     Dosage: 2 MG MILLIGRAM(S), INTRAVENOUS
     Route: 042
     Dates: start: 20111122
  9. PREDNISOLONE [Suspect]
     Indication: DIFFUSE LARGE B-CELL LYMPHOMA
     Dosage: 60 MG MILLIGRAM(S)

REACTIONS (4)
  - BONE MARROW FAILURE [None]
  - NON-HODGKIN'S LYMPHOMA [None]
  - SEPSIS [None]
  - DEEP VEIN THROMBOSIS [None]
